FAERS Safety Report 11786205 (Version 1)
Quarter: 2015Q4

REPORT INFORMATION
  Report Type: Spontaneous
  Country: US (occurrence: US)
  Receive Date: 20151130
  Receipt Date: 20151130
  Transmission Date: 20160305
  Serious: No
  Sender: FDA-Public Use
  Company Number: US-009507513-1511USA012465

PATIENT
  Sex: Female

DRUGS (1)
  1. NUVARING [Suspect]
     Active Substance: ETHINYL ESTRADIOL\ETONOGESTREL
     Dosage: 11.7 MG ETONOGESTREL AND 2.7 MG ETHINYL ESTRADIOL / 3 WEEKS IN 1 WEEK FREE
     Route: 067

REACTIONS (1)
  - Bacterial vaginosis [Not Recovered/Not Resolved]
